FAERS Safety Report 6937035-0 (Version None)
Quarter: 2010Q3

REPORT INFORMATION
  Report Type: 
  Country: None (occurrence: None)
  Receive Date: 20100823
  Receipt Date: 20100816
  Transmission Date: 20110219
  Serious: Yes (Disabling)
  Sender: FDA-Public Use
  Company Number: AU-B.I. PHARMACEUTICALS,INC./RIDGEFIELD-2010-BP-07549YA

PATIENT
  Age: 53 Year
  Sex: Male

DRUGS (2)
  1. FLOMAXTRA XL (TAMSULOSIN) ORODISPERSABLE [Suspect]
     Indication: URINARY TRACT DISORDER
     Dosage: 400 MCG
     Route: 048
     Dates: start: 20071024, end: 20071116
  2. NEXIUM [Concomitant]
     Route: 048

REACTIONS (4)
  - PERINEAL INDURATION [None]
  - PRIAPISM [None]
  - RETROGRADE EJACULATION [None]
  - SPONTANEOUS PENILE ERECTION [None]
